FAERS Safety Report 8412227-2 (Version None)
Quarter: 2012Q2

REPORT INFORMATION
  Report Type: 
  Country: None (occurrence: None)
  Receive Date: 20120605
  Receipt Date: 20120523
  Transmission Date: 20120825
  Serious: Yes (Other)
  Sender: FDA-Public Use
  Company Number: US-PFIZER INC-2012124945

PATIENT
  Sex: Male

DRUGS (3)
  1. METFORMIN [Concomitant]
     Dosage: UNK, 2X/DAY
  2. GLYBURIDE [Concomitant]
     Dosage: UNK, 2X/DAY
  3. VIAGRA [Suspect]
     Dosage: UNK
     Route: 048

REACTIONS (1)
  - TYPE 2 DIABETES MELLITUS [None]
